FAERS Safety Report 22226107 (Version 1)
Quarter: 2023Q2

REPORT INFORMATION
  Report Type: Spontaneous
  Country: DE (occurrence: DE)
  Receive Date: 20230419
  Receipt Date: 20230419
  Transmission Date: 20230722
  Serious: Yes (Other)
  Sender: FDA-Public Use
  Company Number: DE-STRIDES ARCOLAB LIMITED-2023SP005548

PATIENT

DRUGS (14)
  1. DEXAMETHASONE [Suspect]
     Active Substance: DEXAMETHASONE
     Indication: Plasma cell myeloma refractory
     Dosage: 40 MILLIGRAM (AS A PART OF VTD-PACE REGIMEN; ORAL DEXAMETHASONE 40MG ON DAYS 1, 2, 3 AND 4)
     Route: 048
  2. DEXAMETHASONE [Suspect]
     Active Substance: DEXAMETHASONE
     Dosage: 40 MILLIGRAM (AS A PART OF KDT-PACE REGIMEN; ORAL DEXAMETHASONE 40MG ON DAYS1, 2, 3, AND 4)
     Route: 048
  3. ETOPOSIDE [Suspect]
     Active Substance: ETOPOSIDE
     Indication: Plasma cell myeloma refractory
     Dosage: 40 MILLIGRAM/SQ. METER PER DAY (AS A PART OF VTD-PACE REGIMEN; CONTINUOUS IV INFUSIONS FROM DAY 1-4,
     Route: 042
  4. ETOPOSIDE [Suspect]
     Active Substance: ETOPOSIDE
     Dosage: 40 MILLIGRAM/SQ. METER PER DAY (AS A PART OF KDT-PACE REGIMEN; CONTINUOUS IV INFUSIONS FROM DAY 1-4,
     Route: 042
  5. CISPLATIN [Suspect]
     Active Substance: CISPLATIN
     Indication: Plasma cell myeloma refractory
     Dosage: 10 MILLIGRAM/SQ. METER PER DAY (AS A PART OF VTD-PACE REGIMEN; CONTINUOUS IV INFUSIONS FROM DAY 1-4,
     Route: 042
  6. CISPLATIN [Suspect]
     Active Substance: CISPLATIN
     Dosage: 10 MILLIGRAM/SQ. METER PER DAY (AS A PART OF KDT-PACE REGIMEN; CONTINUOUS IV INFUSIONS FROM DAY 1-4,
     Route: 042
  7. DOXORUBICIN [Suspect]
     Active Substance: DOXORUBICIN
     Indication: Plasma cell myeloma refractory
     Dosage: 10 MILLIGRAM/SQ. METER PER DAY (AS A PART OF VTD-PACE REGIMEN; CONTINUOUS IV INFUSIONS FROM DAY 1-4,
     Route: 042
  8. DOXORUBICIN [Suspect]
     Active Substance: DOXORUBICIN
     Dosage: 10 MILLIGRAM/SQ. METER PER DAY (AS A PART OF KDT-PACE REGIMEN; CONTINUOUS IV INFUSIONS FROM DAY 1-4,
     Route: 042
  9. BORTEZOMIB [Suspect]
     Active Substance: BORTEZOMIB
     Indication: Plasma cell myeloma refractory
     Dosage: 1 MILLIGRAM/SQ. METER (AS A PART OF VTD-PACE REGIMEN; BSA ON DAYS 1, 4, 8 AND 11)
     Route: 058
  10. THALIDOMIDE [Suspect]
     Active Substance: THALIDOMIDE
     Indication: Plasma cell myeloma refractory
     Dosage: 200 MILLIGRAM, QD (AS A PART OF VTD-PACE REGIMEN; ORAL THALIDOMIDE 200MG ONCE A DAY THROUGH OUT THE
     Route: 048
  11. THALIDOMIDE [Suspect]
     Active Substance: THALIDOMIDE
     Dosage: 200 MILLIGRAM, QD (AS A PART OF KDT-PACE REGIMEN; ORAL THALIDOMIDE 200MG ONCE A DAY THROUGH OUT THE
     Route: 048
  12. CYCLOPHOSPHAMIDE [Suspect]
     Active Substance: CYCLOPHOSPHAMIDE
     Indication: Plasma cell myeloma refractory
     Dosage: 400 MILLIGRAM/SQ. METER PER DAY (AS A PART OF VTD-PACE REGIMEN ; CONTINUOUS IV INFUSIONS FROM DAY 1-
     Route: 042
  13. CYCLOPHOSPHAMIDE [Suspect]
     Active Substance: CYCLOPHOSPHAMIDE
     Dosage: 400 MILLIGRAM/SQ. METER PER DAY (AS A PART OF KDT-PACE REGIMEN; CONTINUOUS IV INFUSIONS FROM DAY 1-4
     Route: 042
  14. CARFILZOMIB [Suspect]
     Active Substance: CARFILZOMIB
     Indication: Plasma cell myeloma refractory
     Dosage: UNK, AS A PART OF KDT-PACE REGIMEN
     Route: 065

REACTIONS (5)
  - Febrile neutropenia [Unknown]
  - Thrombocytopenia [Unknown]
  - Drug ineffective [Unknown]
  - Lymphopenia [Unknown]
  - Off label use [Unknown]
